FAERS Safety Report 4842952-1 (Version None)
Quarter: 2005Q4

REPORT INFORMATION
  Report Type: 
  Country: None (occurrence: None)
  Receive Date: 20051201
  Receipt Date: 20051121
  Transmission Date: 20060501
  Serious: Yes (Death, Hospitalization)
  Sender: FDA-Public Use
  Company Number: KR-SANOFI-SYNTHELABO-A01200508123

PATIENT
  Sex: Male
  Weight: 58 kg

DRUGS (9)
  1. PLAVIX [Suspect]
     Indication: CORONARY ARTERY SURGERY
     Route: 048
     Dates: start: 20041225, end: 20050707
  2. ASPIRIN [Concomitant]
     Indication: MYOCARDIAL INFARCTION
     Route: 048
     Dates: start: 20041225, end: 20050707
  3. CONCOR [Concomitant]
     Indication: MYOCARDIAL INFARCTION
     Route: 048
     Dates: start: 20041225, end: 20050707
  4. MOLSITON [Concomitant]
     Indication: MYOCARDIAL INFARCTION
     Route: 048
     Dates: start: 20041225, end: 20050707
  5. ATACANT [Concomitant]
     Indication: MYOCARDIAL INFARCTION
     Dosage: 16/12.5 MG BID
     Route: 048
     Dates: start: 20041225, end: 20050707
  6. AMOPIDIN [Concomitant]
     Indication: MYOCARDIAL INFARCTION
     Route: 048
     Dates: start: 20041225, end: 20050707
  7. MEVALOTIN [Concomitant]
     Indication: MYOCARDIAL INFARCTION
     Route: 048
     Dates: start: 20041225, end: 20050707
  8. LASIX [Concomitant]
     Indication: MYOCARDIAL INFARCTION
     Route: 048
     Dates: start: 20041225, end: 20050707
  9. ALDANTON [Concomitant]
     Indication: MYOCARDIAL INFARCTION
     Route: 048
     Dates: start: 20041225, end: 20050707

REACTIONS (3)
  - ABDOMINAL PAIN [None]
  - HYPOTENSION [None]
  - SEPSIS [None]
